FAERS Safety Report 9038901 (Version 1)
Quarter: 2013Q1

REPORT INFORMATION
  Report Type: Spontaneous
  Country: US (occurrence: None)
  Receive Date: 20130123
  Receipt Date: 20130123
  Transmission Date: 20140127
  Serious: No
  Sender: FDA-Public Use
  Company Number: None

PATIENT
  Age: 81 Year
  Sex: Female

DRUGS (1)
  1. VESICARE [Suspect]
     Indication: BLADDER DISORDER
     Route: 048
     Dates: start: 2010, end: 2013

REACTIONS (4)
  - Choking [None]
  - Dry mouth [None]
  - Saliva altered [None]
  - Gastrointestinal obstruction [None]
